FAERS Safety Report 8763261 (Version 1)
Quarter: 2012Q4

REPORT INFORMATION
  Report Type: Spontaneous
  Country: US (occurrence: None)
  Receive Date: 20120831
  Receipt Date: 20120831
  Transmission Date: 20130627
  Serious: Yes (Other)
  Sender: FDA-Public Use
  Company Number: None

PATIENT
  Age: 62 Year
  Sex: Female

DRUGS (2)
  1. ALVESCO [Suspect]
     Dosage: reaction in 3rd month
     Route: 055
     Dates: start: 20120606, end: 20120803
  2. OMNARIS [Concomitant]

REACTIONS (1)
  - Hypersensitivity [None]
